FAERS Safety Report 24551533 (Version 2)
Quarter: 2024Q4

REPORT INFORMATION
  Report Type: Report from Study
  Country: CA (occurrence: CA)
  Receive Date: 20241026
  Receipt Date: 20241113
  Transmission Date: 20250114
  Serious: Yes (Hospitalization, Other)
  Sender: ABBVIE
  Company Number: CA-ABBVIE-5974283

PATIENT
  Age: 71 Year
  Sex: Male

DRUGS (4)
  1. RINVOQ [Suspect]
     Active Substance: UPADACITINIB
     Indication: Rheumatoid arthritis
     Dosage: FORM STRENGTH: 15 MILLIGRAM
     Route: 048
     Dates: start: 2024
  2. RINVOQ [Suspect]
     Active Substance: UPADACITINIB
     Indication: Rheumatoid arthritis
     Dosage: 15 MG
     Route: 048
     Dates: start: 20210804
  3. RINVOQ [Suspect]
     Active Substance: UPADACITINIB
     Indication: Rheumatoid arthritis
     Dosage: FORM STRENGTH: 15 MILLIGRAM
     Route: 048
  4. JAMP AMOXICILLIN [Concomitant]
     Indication: Product used for unknown indication
     Dosage: 500/125 FOR 10 DAYS

REACTIONS (11)
  - Gallbladder operation [Unknown]
  - Gastrointestinal infection [Unknown]
  - Gait inability [Unknown]
  - Scab [Unknown]
  - Skin wound [Unknown]
  - Clostridium difficile infection [Unknown]
  - Arthralgia [Unknown]
  - Asthenia [Unknown]
  - Back disorder [Unknown]
  - Spinal operation [Not Recovered/Not Resolved]
  - Joint noise [Unknown]

NARRATIVE: CASE EVENT DATE: 20210801
